FAERS Safety Report 5387683-7 (Version None)
Quarter: 2007Q3

REPORT INFORMATION
  Report Type: 
  Country: None (occurrence: None)
  Receive Date: 20070716
  Receipt Date: 20070711
  Transmission Date: 20080115
  Serious: Yes (Life-Threatening)
  Sender: FDA-Public Use
  Company Number: US-ASTRAZENECA-2007UW13783

PATIENT
  Age: 2303 Day
  Sex: Male
  Weight: 16.4 kg

DRUGS (2)
  1. PULMICORT FLEXHALER [Suspect]
     Indication: ASTHMA
     Route: 055
     Dates: start: 20070606, end: 20070606
  2. PULMICORT RESPULES [Concomitant]
     Route: 055

REACTIONS (4)
  - BRONCHOSPASM [None]
  - HYPERSENSITIVITY [None]
  - HYPOXIA [None]
  - WHEEZING [None]
